FAERS Safety Report 4512474-6 (Version None)
Quarter: 2004Q4

REPORT INFORMATION
  Report Type: 
  Country: None (occurrence: None)
  Receive Date: 20041008
  Receipt Date: 20040614
  Transmission Date: 20050328
  Serious: Yes (Other)
  Sender: FDA-Public Use
  Company Number: 371121

PATIENT
  Sex: 0

DRUGS (1)
  1. FUZENO (ENFUVIRTIDE) [Suspect]
     Indication: DRUG USE FOR UNKNOWN INDICATION

REACTIONS (2)
  - DRUG INEFFECTIVE [None]
  - DRUG RESISTANCE [None]
